FAERS Safety Report 4961892-0 (Version None)
Quarter: 2006Q1

REPORT INFORMATION
  Report Type: 
  Country: None (occurrence: None)
  Receive Date: 20060329
  Receipt Date: 20060320
  Transmission Date: 20060701
  Serious: Yes (Hospitalization)
  Sender: FDA-Public Use
  Company Number: 430017M06USA

PATIENT
  Age: 53 Year
  Sex: Female
  Weight: 59.4 kg

DRUGS (8)
  1. NOVANTRONE [Suspect]
     Indication: ACUTE MYELOID LEUKAEMIA
     Dates: start: 20060106
  2. ETOPOSIDE [Suspect]
     Indication: ACUTE MYELOID LEUKAEMIA
     Dates: start: 20060106
  3. CYTARABINE [Suspect]
     Indication: ACUTE MYELOID LEUKAEMIA
     Dates: start: 20060106
  4. IMITREX [Concomitant]
  5. SYNTHROID [Concomitant]
  6. K-DUR 10 [Concomitant]
  7. FAMVIR [Concomitant]
  8. VORICONAZOLE (VORICONAZOLE) [Concomitant]

REACTIONS (2)
  - CSF TEST ABNORMAL [None]
  - NEUTROPENIA [None]
